FAERS Safety Report 6695426-X (Version None)
Quarter: 2010Q2

REPORT INFORMATION
  Report Type: 
  Country: None (occurrence: None)
  Receive Date: 20100422
  Receipt Date: 20100422
  Transmission Date: 20101027
  Serious: Yes (Other)
  Sender: FDA-Public Use
  Company Number: None

PATIENT
  Age: 51 Year
  Sex: Female
  Weight: 64.4108 kg

DRUGS (2)
  1. HUMALOG MIX 75/25 [Suspect]
     Indication: DIABETES MELLITUS
     Dosage: 18-32-24 3X A DAYS INJECTION
     Dates: start: 20090901, end: 20100301
  2. HUMALOG MIX 75/25 KWIKPEN [Suspect]
     Indication: DIABETES MELLITUS
     Dosage: 18-32-24 3X A DAYS INJECTION
     Dates: start: 20100302, end: 20100317

REACTIONS (8)
  - ABDOMINAL PAIN UPPER [None]
  - BLOOD GLUCOSE INCREASED [None]
  - GAIT DISTURBANCE [None]
  - HEADACHE [None]
  - MOUTH HAEMORRHAGE [None]
  - PAIN [None]
  - PAIN IN EXTREMITY [None]
  - WRONG DRUG ADMINISTERED [None]
